FAERS Safety Report 4393675-7 (Version None)
Quarter: 2004Q3

REPORT INFORMATION
  Report Type: 
  Country: None (occurrence: None)
  Receive Date: 20040709
  Receipt Date: 20040709
  Transmission Date: 20050211
  Serious: Yes (Other)
  Sender: FDA-Public Use
  Company Number: None

PATIENT

DRUGS (1)
  1. DURAGESIC [Suspect]

REACTIONS (14)
  - BACK INJURY [None]
  - CARDIAC DISORDER [None]
  - CONDITION AGGRAVATED [None]
  - DIZZINESS [None]
  - FALL [None]
  - FATIGUE [None]
  - FEELING DRUNK [None]
  - HEADACHE [None]
  - LIMB INJURY [None]
  - MENTAL IMPAIRMENT [None]
  - OVERDOSE [None]
  - PHARMACEUTICAL PRODUCT COMPLAINT [None]
  - RESPIRATION ABNORMAL [None]
  - TREMOR [None]
